FAERS Safety Report 11815858 (Version 1)
Quarter: 2015Q4

REPORT INFORMATION
  Report Type: Other
  Country: US (occurrence: US)
  Receive Date: 20151209
  Receipt Date: 20151209
  Transmission Date: 20160305
  Serious: Yes (Other)
  Sender: FDA-Public Use
  Company Number: US-COL_21401_2015

PATIENT
  Age: 56 Year
  Sex: Male

DRUGS (4)
  1. DOXYCYCLINE. [Suspect]
     Active Substance: DOXYCYCLINE
     Indication: ANKLE FRACTURE
     Dosage: NI/NI/
     Dates: start: 201511, end: 20151123
  2. SOFTSOAP NATURALS SOOTHING ALOE LIQU ID HAND SOAP [Suspect]
     Active Substance: COSMETICS
     Indication: PRODUCT USED FOR UNKNOWN INDICATION
     Dosage: SPONGE BATH/DAILY/
     Route: 061
     Dates: start: 201509, end: 20151124
  3. LISINOPRIL. [Concomitant]
     Active Substance: LISINOPRIL
     Indication: HYPERTENSION
     Dosage: 10 MG/DAILY/
  4. CLINDAMYCIN [Suspect]
     Active Substance: CLINDAMYCIN\CLINDAMYCIN PHOSPHATE
     Indication: ANKLE FRACTURE
     Dosage: NI/NI/
     Dates: end: 201511

REACTIONS (2)
  - Rash erythematous [Recovering/Resolving]
  - Urticaria [Recovering/Resolving]

NARRATIVE: CASE EVENT DATE: 2015
